FAERS Safety Report 6362797-3 (Version None)
Quarter: 2009Q3

REPORT INFORMATION
  Report Type: 
  Country: None (occurrence: None)
  Receive Date: 20090919
  Receipt Date: 20090618
  Transmission Date: 20100115
  Serious: No
  Sender: FDA-Public Use
  Company Number: US-ABBOTT-09P-163-0579199-00

PATIENT
  Sex: Female

DRUGS (1)
  1. HUMIRA [Suspect]
     Indication: DRUG USE FOR UNKNOWN INDICATION
     Dates: start: 20060901, end: 20070401

REACTIONS (5)
  - DRUG INEFFECTIVE [None]
  - INJECTION SITE REACTION [None]
  - JOINT SWELLING [None]
  - PAIN [None]
  - RASH GENERALISED [None]
